FAERS Safety Report 14732119 (Version 3)
Quarter: 2018Q3

REPORT INFORMATION
  Report Type: Spontaneous
  Country: HR (occurrence: HR)
  Receive Date: 20180409
  Receipt Date: 20180907
  Transmission Date: 20181010
  Serious: Yes (Other)
  Sender: FDA-Public Use
  Company Number: HR-ROCHE-2102856

PATIENT
  Age: 62 Year
  Sex: Male

DRUGS (5)
  1. IBRUTINIB [Suspect]
     Active Substance: IBRUTINIB
     Indication: MANTLE CELL LYMPHOMA
     Dosage: 560 MILLIGRAM DAILY;
     Route: 048
     Dates: start: 201506, end: 201606
  2. RITUXIMAB. [Suspect]
     Active Substance: RITUXIMAB
     Indication: MANTLE CELL LYMPHOMA
     Dosage: DOSAGE FORM: UNSPECIFIED
     Route: 065
     Dates: start: 201606
  3. BENDAMUSTINE HYDROCHLORIDE. [Suspect]
     Active Substance: BENDAMUSTINE HYDROCHLORIDE
     Dosage: DOSAGE FORM: UNSPECIFIED
     Route: 065
  4. RITUXIMAB. [Suspect]
     Active Substance: RITUXIMAB
     Indication: MANTLE CELL LYMPHOMA
     Dosage: DOSAGE FORM: UNSPECIFIED
     Route: 065
     Dates: start: 201607
  5. BENDAMUSTINE HYDROCHLORIDE. [Suspect]
     Active Substance: BENDAMUSTINE HYDROCHLORIDE
     Indication: MANTLE CELL LYMPHOMA
     Dosage: DOSAGE FORM: POWDER
     Route: 042
     Dates: start: 201606

REACTIONS (4)
  - Mantle cell lymphoma [Recovering/Resolving]
  - Pyrexia [Unknown]
  - Pruritus [Unknown]
  - Acute kidney injury [Unknown]

NARRATIVE: CASE EVENT DATE: 201506
